FAERS Safety Report 11119086 (Version 1)
Quarter: 2015Q2

REPORT INFORMATION
  Report Type: Spontaneous
  Country: US (occurrence: None)
  Receive Date: 20150515
  Receipt Date: 20150515
  Transmission Date: 20150821
  Serious: No
  Sender: FDA-Public Use
  Company Number: None

PATIENT
  Age: 73 Year
  Sex: Male
  Weight: 75.2 kg

DRUGS (2)
  1. ERBITUX [Suspect]
     Active Substance: CETUXIMAB
     Dates: end: 20140407
  2. TAXOTERE [Suspect]
     Active Substance: DOCETAXEL
     Dates: end: 20140407

REACTIONS (1)
  - Osteoradionecrosis [None]

NARRATIVE: CASE EVENT DATE: 20150420
